FAERS Safety Report 14453025 (Version 1)
Quarter: 2018Q1

REPORT INFORMATION
  Report Type: Spontaneous
  Country: GR (occurrence: GR)
  Receive Date: 20180129
  Receipt Date: 20180129
  Transmission Date: 20180509
  Serious: Yes (Other)
  Sender: FDA-Public Use
  Company Number: GR-BAYER-2018-015492

PATIENT
  Age: 67 Year
  Sex: Male

DRUGS (1)
  1. ULTRAVIST [Suspect]
     Active Substance: IOPROMIDE
     Indication: COMPUTERISED TOMOGRAM
     Dosage: ONCE
     Route: 042
     Dates: start: 20180123, end: 20180123

REACTIONS (3)
  - Vein rupture [None]
  - Peripheral swelling [None]
  - Extravasation [None]

NARRATIVE: CASE EVENT DATE: 20180123
